FAERS Safety Report 8585119-6 (Version None)
Quarter: 2012Q3

REPORT INFORMATION
  Report Type: 
  Country: None (occurrence: None)
  Receive Date: 20120810
  Receipt Date: 20120801
  Transmission Date: 20120928
  Serious: No
  Sender: FDA-Public Use
  Company Number: US-BAYER-2012-079931

PATIENT

DRUGS (1)
  1. ULTRAVIST 150 [Suspect]

REACTIONS (1)
  - ADVERSE EVENT [None]
